FAERS Safety Report 21856509 (Version 1)
Quarter: 2023Q1

REPORT INFORMATION
  Report Type: Spontaneous
  Country: US (occurrence: US)
  Receive Date: 20230112
  Receipt Date: 20230112
  Transmission Date: 20230417
  Serious: No
  Sender: FDA-Public Use
  Company Number: US-PCCINC-2023-PEL-000013

PATIENT

DRUGS (5)
  1. BACLOFEN [Suspect]
     Active Substance: BACLOFEN
     Indication: Product used for unknown indication
     Dosage: 300.293 MICROGRAM, QD
     Route: 037
  2. MORPHINE SULFATE [Suspect]
     Active Substance: MORPHINE SULFATE
     Indication: Product used for unknown indication
     Dosage: 0.600 MILLIGRAM, QD
     Route: 037
  3. PRIALT [Suspect]
     Active Substance: ZICONOTIDE ACETATE
     Indication: Product used for unknown indication
     Dosage: UNK
     Route: 037
  4. BUPIVACAINE [Suspect]
     Active Substance: BUPIVACAINE
     Indication: Product used for unknown indication
     Dosage: 6.005 MILLIGRAM, QD
     Route: 037
  5. CLONIDINE [Suspect]
     Active Substance: CLONIDINE
     Indication: Product used for unknown indication
     Dosage: 90.087 MICROGRAM, QD
     Route: 037

REACTIONS (5)
  - Swelling face [Unknown]
  - Mental status changes [Unknown]
  - Muscular weakness [Unknown]
  - Lethargy [Unknown]
  - Hypoaesthesia [Unknown]
